FAERS Safety Report 16481999 (Version 1)
Quarter: 2019Q2

REPORT INFORMATION
  Report Type: Spontaneous
  Country: US (occurrence: US)
  Receive Date: 20190627
  Receipt Date: 20190627
  Transmission Date: 20190711
  Serious: No
  Sender: FDA-Public Use
  Company Number: US-SA-2019SA167841

PATIENT
  Age: 63 Year
  Sex: Female

DRUGS (4)
  1. HUMIRA [Suspect]
     Active Substance: ADALIMUMAB
     Dosage: 80 MG 1 IN 2 WEEK
     Route: 058
     Dates: start: 201903
  2. PLAVIX [Suspect]
     Active Substance: CLOPIDOGREL BISULFATE
     Dosage: UNK
     Route: 065
  3. HUMIRA [Suspect]
     Active Substance: ADALIMUMAB
     Dosage: 80 MG 1 IN 2 WEEK
     Route: 058
     Dates: start: 20190301, end: 20190301
  4. HUMIRA [Suspect]
     Active Substance: ADALIMUMAB
     Indication: PSORIASIS
     Dosage: 80 MG 1 IN 2 WEEK
     Route: 058
     Dates: start: 20190223, end: 20190223

REACTIONS (8)
  - Nasopharyngitis [Unknown]
  - General physical health deterioration [Unknown]
  - Pain of skin [Not Recovered/Not Resolved]
  - Abdominal pain upper [Recovered/Resolved]
  - General physical condition abnormal [Not Recovered/Not Resolved]
  - Cardiac disorder [Unknown]
  - Pruritus [Not Recovered/Not Resolved]
  - Skin haemorrhage [Unknown]

NARRATIVE: CASE EVENT DATE: 2019
